FAERS Safety Report 4893803-0 (Version None)
Quarter: 2006Q1

REPORT INFORMATION
  Report Type: 
  Country: None (occurrence: None)
  Receive Date: 20060127
  Receipt Date: 20020808
  Transmission Date: 20060701
  Serious: Yes (Hospitalization)
  Sender: FDA-Public Use
  Company Number: PHHO2002VE11127

PATIENT
  Age: 69 Year
  Sex: Male

DRUGS (1)
  1. ZELNORM [Suspect]

REACTIONS (2)
  - COLON OPERATION [None]
  - DIVERTICULITIS [None]
